FAERS Safety Report 24939859 (Version 1)
Quarter: 2025Q1

REPORT INFORMATION
  Report Type: Spontaneous
  Country: US (occurrence: US)
  Receive Date: 20250207
  Receipt Date: 20250207
  Transmission Date: 20250408
  Serious: No
  Sender: AMGEN
  Company Number: US-AMGEN-USASL2025021349

PATIENT
  Sex: Female

DRUGS (2)
  1. REPATHA [Suspect]
     Active Substance: EVOLOCUMAB
     Indication: Product used for unknown indication
     Route: 065
  2. TIRZEPATIDE [Concomitant]
     Active Substance: TIRZEPATIDE
     Indication: Hyperglycaemia
     Route: 065

REACTIONS (3)
  - Intervertebral disc protrusion [Recovering/Resolving]
  - Blood triglycerides increased [Unknown]
  - Blood glucose abnormal [Unknown]
